FAERS Safety Report 4535172-1 (Version None)
Quarter: 2004Q4

REPORT INFORMATION
  Report Type: 
  Country: None (occurrence: None)
  Receive Date: 20041222
  Receipt Date: 20040608
  Transmission Date: 20050328
  Serious: No
  Sender: FDA-Public Use
  Company Number: US-BRISTOL-MYERS SQUIBB COMPANY-12609301

PATIENT
  Age: 79 Year
  Sex: Female
  Weight: 59 kg

DRUGS (5)
  1. DOVONEX [Suspect]
     Indication: PSORIASIS
     Dosage: AT NIGHT
     Route: 061
     Dates: start: 20040324
  2. ULTRAVATE [Suspect]
     Indication: PSORIASIS
     Dosage: IN THE MORNING.  USED THE CREAM FOR 2 YEARS.
     Route: 061
  3. ACLOVATE [Concomitant]
     Indication: PSORIASIS
     Dosage: OINTMENT 0.05% DAILY AT NIGHT ON HER FACE
     Route: 061
  4. ASPIRIN [Concomitant]
     Dosage: ^OCCASIONALLY^
  5. METHOTREXATE [Concomitant]
     Dosage: ^1 DOSE ONLY^

REACTIONS (1)
  - DRUG INEFFECTIVE [None]
